FAERS Safety Report 6055011-X (Version None)
Quarter: 2009Q1

REPORT INFORMATION
  Report Type: 
  Country: None (occurrence: None)
  Receive Date: 20090122
  Receipt Date: 20090119
  Transmission Date: 20090719
  Serious: Yes (Other)
  Sender: FDA-Public Use
  Company Number: GXKR2009DE00816

PATIENT
  Age: 15 Month
  Sex: Male
  Weight: 9 kg

DRUGS (2)
  1. IBUPROFEN [Suspect]
     Indication: RESPIRATORY TRACT INFECTION
     Dosage: 125 MG EVERY DAY
  2. BRONCHIPRET LIQUID (HEDERA HELIX, THYME, THYMUS VULGARIS) [Concomitant]

REACTIONS (1)
  - RESPIRATORY DEPRESSION [None]
